FAERS Safety Report 15526677 (Version 1)
Quarter: 2018Q4

REPORT INFORMATION
  Report Type: Spontaneous
  Country: CH (occurrence: CH)
  Receive Date: 20181019
  Receipt Date: 20181019
  Transmission Date: 20190205
  Serious: Yes (Other)
  Sender: FDA-Public Use
  Company Number: CH-IDTAUSTRALIA-2018-CH-000018

PATIENT
  Age: 61 Year
  Sex: Male

DRUGS (1)
  1. TEMOZOLOMIDE CAPSULES (NON-SPECIFIC) [Suspect]
     Active Substance: TEMOZOLOMIDE
     Indication: MALIGNANT MELANOMA

REACTIONS (1)
  - Drug reaction with eosinophilia and systemic symptoms [Unknown]
